FAERS Safety Report 15603191 (Version 1)
Quarter: 2018Q4

REPORT INFORMATION
  Report Type: Spontaneous
  Country: US (occurrence: US)
  Receive Date: 20181109
  Receipt Date: 20181109
  Transmission Date: 20190205
  Serious: No
  Sender: FDA-Public Use
  Company Number: None

PATIENT
  Age: 60 Year
  Sex: Male
  Weight: 96.75 kg

DRUGS (10)
  1. NATUREMADE TRIPLEFLEX [Concomitant]
  2. DOCUSATE [Concomitant]
     Active Substance: DOCUSATE
  3. FUROSEMIDE. [Concomitant]
     Active Substance: FUROSEMIDE
  4. VITAMIN D [Concomitant]
     Active Substance: CHOLECALCIFEROL
  5. NIFEDIPINE EXTENDED-RELEASE [Suspect]
     Active Substance: NIFEDIPINE
     Indication: HYPERTENSION
     Dosage: ?          QUANTITY:30 TABLET(S);?
     Route: 048
     Dates: start: 20181030, end: 20181109
  6. ASPIRIN. [Concomitant]
     Active Substance: ASPIRIN
  7. CARVEDILOL. [Concomitant]
     Active Substance: CARVEDILOL
  8. ATORVASTATIN [Concomitant]
     Active Substance: ATORVASTATIN
  9. CENTRUM SILVER MEN^S 50+ MULTIVITAMIN [Concomitant]
  10. LISINOPRIL. [Concomitant]
     Active Substance: LISINOPRIL

REACTIONS (4)
  - Therapeutic response changed [None]
  - Drug ineffective [None]
  - Product substitution issue [None]
  - Product physical issue [None]

NARRATIVE: CASE EVENT DATE: 20181030
